FAERS Safety Report 6801602-5 (Version None)
Quarter: 2010Q2

REPORT INFORMATION
  Report Type: 
  Country: None (occurrence: None)
  Receive Date: 20100629
  Receipt Date: 20100623
  Transmission Date: 20101027
  Serious: Yes (Other)
  Sender: FDA-Public Use
  Company Number: US-GILEAD-2010-0030055

PATIENT
  Sex: Female

DRUGS (9)
  1. LETAIRIS [Suspect]
     Indication: COR PULMONALE CHRONIC
     Route: 048
     Dates: start: 20100331
  2. ASPIRIN [Concomitant]
  3. HYDRALAZINE HCL [Concomitant]
  4. ATENOLOL [Concomitant]
  5. ISOSORBIDE [Concomitant]
  6. NITROGLYCERIN [Concomitant]
  7. VYTORIN [Concomitant]
  8. GLYBURIDE [Concomitant]
  9. CENTRUM SILVER [Concomitant]

REACTIONS (1)
  - HAEMORRHAGE [None]
